FAERS Safety Report 18587068 (Version 1)
Quarter: 2020Q4

REPORT INFORMATION
  Report Type: Spontaneous
  Country: US (occurrence: US)
  Receive Date: 20201207
  Receipt Date: 20201207
  Transmission Date: 20210114
  Serious: No
  Sender: FDA-Public Use
  Company Number: US-PFIZER INC-2020479797

PATIENT

DRUGS (8)
  1. BINIMETINIB [Suspect]
     Active Substance: BINIMETINIB
     Indication: ANAL CANCER
  2. IRINOTECAN HCL [Suspect]
     Active Substance: IRINOTECAN HYDROCHLORIDE
     Indication: BRAF GENE MUTATION
     Dosage: UNK
  3. IRINOTECAN HCL [Suspect]
     Active Substance: IRINOTECAN HYDROCHLORIDE
     Indication: ANAL CANCER
  4. CETUXIMAB. [Suspect]
     Active Substance: CETUXIMAB
     Indication: BRAF GENE MUTATION
     Dosage: UNK
  5. BINIMETINIB [Suspect]
     Active Substance: BINIMETINIB
     Indication: BRAF GENE MUTATION
     Dosage: UNK
  6. ENCORAFENIB [Suspect]
     Active Substance: ENCORAFENIB
     Indication: BRAF GENE MUTATION
     Dosage: UNK
  7. ENCORAFENIB [Suspect]
     Active Substance: ENCORAFENIB
     Indication: ANAL CANCER
  8. CETUXIMAB. [Suspect]
     Active Substance: CETUXIMAB
     Indication: ANAL CANCER

REACTIONS (2)
  - Toxicity to various agents [Unknown]
  - Off label use [Unknown]
